FAERS Safety Report 9476528 (Version 1)
Quarter: 2013Q3

REPORT INFORMATION
  Report Type: Spontaneous
  Country: US (occurrence: None)
  Receive Date: 20130823
  Receipt Date: 20130823
  Transmission Date: 20140515
  Serious: No
  Sender: FDA-Public Use
  Company Number: None

PATIENT
  Age: 49 Year
  Sex: Female
  Weight: 90.72 kg

DRUGS (1)
  1. GRALISE [Suspect]
     Indication: NEURALGIA
     Dosage: 600 MG X 2 DAY

REACTIONS (4)
  - Depression [None]
  - Agitation [None]
  - Irritability [None]
  - Anger [None]
